FAERS Safety Report 7464327-1 (Version None)
Quarter: 2011Q2

REPORT INFORMATION
  Report Type: 
  Country: None (occurrence: None)
  Receive Date: 20110509
  Receipt Date: 20110429
  Transmission Date: 20111010
  Serious: Yes (Hospitalization)
  Sender: FDA-Public Use
  Company Number: US-BIOGENIDEC-2011BI016129

PATIENT
  Sex: Male

DRUGS (2)
  1. AVONEX [Suspect]
     Indication: MULTIPLE SCLEROSIS
     Route: 030
     Dates: start: 20020201
  2. BETASERON [Concomitant]
     Dates: start: 20060101, end: 20090101

REACTIONS (5)
  - DEPRESSED MOOD [None]
  - FEAR OF NEEDLES [None]
  - INJECTION SITE PAIN [None]
  - PYREXIA [None]
  - INJECTION SITE MASS [None]
